FAERS Safety Report 20694012 (Version 2)
Quarter: 2022Q2

REPORT INFORMATION
  Report Type: Spontaneous
  Country: US (occurrence: US)
  Receive Date: 20220411
  Receipt Date: 20220601
  Transmission Date: 20220721
  Serious: Yes (Death, Other)
  Sender: FDA-Public Use
  Company Number: US-BRISTOL-MYERS SQUIBB COMPANY-2022-016009

PATIENT
  Age: 54 Year
  Sex: Female
  Weight: 56.699 kg

DRUGS (1)
  1. REVLIMID [Suspect]
     Active Substance: LENALIDOMIDE
     Indication: Plasma cell myeloma
     Dosage: RY OTHER DAY ON CYCLE DAYS 1
     Route: 048
     Dates: start: 20220303

REACTIONS (1)
  - Death [Fatal]
